FAERS Safety Report 18626625 (Version 1)
Quarter: 2020Q4

REPORT INFORMATION
  Report Type: Spontaneous
  Country: CN (occurrence: CN)
  Receive Date: 20201217
  Receipt Date: 20201217
  Transmission Date: 20210114
  Serious: Yes (Life-Threatening, Hospitalization, Disabling, Other)
  Sender: FDA-Public Use
  Company Number: CN-LUPIN PHARMACEUTICALS INC.-2020-10339

PATIENT
  Age: 19 Year
  Sex: Female

DRUGS (2)
  1. VALPROATE MAGNESIUM [Suspect]
     Active Substance: VALPROATE MAGNESIUM
     Indication: PRODUCT USED FOR UNKNOWN INDICATION
     Dosage: 60 GRAM, FORMULATION: SUSTAINED-RELEASE TABLET
     Route: 048
     Dates: start: 201902
  2. LORAZEPAM. [Suspect]
     Active Substance: LORAZEPAM
     Indication: PRODUCT USED FOR UNKNOWN INDICATION
     Dosage: 19 MILLIGRAM
     Route: 048
     Dates: start: 201902

REACTIONS (4)
  - Intentional overdose [Recovering/Resolving]
  - Retinal degeneration [Unknown]
  - Suicide attempt [Recovering/Resolving]
  - Toxic optic neuropathy [Recovering/Resolving]

NARRATIVE: CASE EVENT DATE: 2019
